FAERS Safety Report 7922081-0 (Version None)
Quarter: 2011Q4

REPORT INFORMATION
  Report Type: 
  Country: None (occurrence: None)
  Receive Date: 20111117
  Receipt Date: 20111108
  Transmission Date: 20120403
  Serious: Yes (Other)
  Sender: FDA-Public Use
  Company Number: US-ASTRAZENECA-2011SE60735

PATIENT
  Age: 63 Year
  Sex: Female
  Weight: 78.5 kg

DRUGS (13)
  1. WELLBUTRIN SR [Concomitant]
     Route: 048
  2. MULTI-VITAMIN [Concomitant]
     Route: 048
  3. AMLODIPINE [Concomitant]
     Route: 048
  4. LOSARTAN POTASSIUM AND HYDROCHLOROTHIAZIDE [Concomitant]
     Dosage: 100-25 MG DAILY
     Route: 048
  5. METOPROLOL SUCCINATE [Concomitant]
     Route: 048
  6. KLOR-CON [Concomitant]
     Route: 048
  7. PREDNISONE TAB [Concomitant]
     Route: 048
  8. ISOSORBIDE MONONITRATE [Concomitant]
     Route: 048
  9. ASPIRIN [Concomitant]
     Route: 048
  10. SYMBICORT [Suspect]
     Indication: CHRONIC OBSTRUCTIVE PULMONARY DISEASE
     Dosage: 160/4.5 MCG TWO PUFFS BID
     Route: 055
     Dates: start: 20110802
  11. ALBUTEROL [Concomitant]
     Indication: WHEEZING
     Dosage: 2 PUFFS EVERY 4 HOURS
     Route: 055
  12. ZOCOR [Concomitant]
     Route: 048
  13. TRIAMCINOLONE [Concomitant]
     Dosage: TWO TIMES DAILY APPLICATION
     Route: 061

REACTIONS (3)
  - CARDIAC STRESS TEST ABNORMAL [None]
  - CORONARY ARTERY OCCLUSION [None]
  - CORONARY ARTERY STENOSIS [None]
